FAERS Safety Report 15536328 (Version 1)
Quarter: 2018Q4

REPORT INFORMATION
  Report Type: Other
  Country: US (occurrence: US)
  Receive Date: 20181022
  Receipt Date: 20181022
  Transmission Date: 20190205
  Serious: Yes (Other)
  Sender: FDA-Public Use
  Company Number: US-ACORDA-ACO_154664_2018

PATIENT
  Sex: Male

DRUGS (2)
  1. TECFIDERA [Suspect]
     Active Substance: DIMETHYL FUMARATE
     Indication: PRODUCT USED FOR UNKNOWN INDICATION
     Dosage: 240 MILLIGRAM, BID
     Route: 065
  2. AMPYRA [Suspect]
     Active Substance: DALFAMPRIDINE
     Indication: MULTIPLE SCLEROSIS
     Dosage: 10 MILLIGRAM, Q 12 HRS
     Route: 048

REACTIONS (8)
  - Barrett^s oesophagus [Unknown]
  - Haemorrhage [Unknown]
  - Skin laceration [Unknown]
  - Cognitive disorder [Unknown]
  - Chest pain [Unknown]
  - Alopecia [Unknown]
  - Contusion [Unknown]
  - Thyroid hormones increased [Unknown]
